FAERS Safety Report 11314030 (Version 2)
Quarter: 2015Q3

REPORT INFORMATION
  Report Type: Spontaneous
  Country: IT (occurrence: IT)
  Receive Date: 20150727
  Receipt Date: 20150805
  Transmission Date: 20151125
  Serious: Yes (Other)
  Sender: FDA-Public Use
  Company Number: IT-TEVA-580375ACC

PATIENT
  Age: 29 Year
  Sex: Male

DRUGS (2)
  1. CYTARABINE. [Suspect]
     Active Substance: CYTARABINE
     Indication: NON-HODGKIN^S LYMPHOMA
     Dosage: 3380 MG CYCLICAL
     Route: 042
     Dates: start: 20150603, end: 20150604
  2. METOTRESSATO TEVA - 100 MG/ML SOLUZIONE INIETTABILE [Suspect]
     Active Substance: METHOTREXATE SODIUM
     Indication: NON-HODGKIN^S LYMPHOMA
     Dosage: 5915 MG CYCLICAL
     Route: 042
     Dates: start: 20150602, end: 20150602

REACTIONS (1)
  - Hyperpyrexia [Recovered/Resolved]

NARRATIVE: CASE EVENT DATE: 20150614
